FAERS Safety Report 19396647 (Version 1)
Quarter: 2021Q2

REPORT INFORMATION
  Report Type: Spontaneous
  Country: CN (occurrence: CN)
  Receive Date: 20210609
  Receipt Date: 20210609
  Transmission Date: 20210717
  Serious: Yes (Other)
  Sender: FDA-Public Use
  Company Number: CN-PFIZER INC-2021631112

PATIENT
  Sex: Female

DRUGS (2)
  1. MEROPENEM. [Suspect]
     Active Substance: MEROPENEM
     Indication: ANTI-INFECTIVE THERAPY
     Dosage: 1 G, FOUR TIMES A DAY [EVERY 6 HOURS (Q6H) VIA PUMP INJECTION]
     Route: 042
     Dates: start: 20210421, end: 202105
  2. LINEZOLID. [Suspect]
     Active Substance: LINEZOLID
     Indication: ANTI-INFECTIVE THERAPY
     Dosage: 600 MG, TWICE A DAY [EVERY 12 HOURS (Q12H)]
     Route: 041
     Dates: start: 20210507, end: 20210514

REACTIONS (1)
  - Aspergillus infection [Unknown]
